FAERS Safety Report 7726035-9 (Version None)
Quarter: 2011Q3

REPORT INFORMATION
  Report Type: 
  Country: None (occurrence: None)
  Receive Date: 20110902
  Receipt Date: 20110823
  Transmission Date: 20111222
  Serious: Yes (Other)
  Sender: FDA-Public Use
  Company Number: US-AMGEN-USASP2011029277

PATIENT
  Age: 62 Year
  Sex: Female

DRUGS (3)
  1. ENBREL [Suspect]
     Indication: RHEUMATOID ARTHRITIS
     Dosage: 50 MG, QWK
     Dates: start: 20060101
  2. ENBREL [Suspect]
  3. ENBREL [Suspect]
     Indication: PSORIASIS

REACTIONS (7)
  - PAIN [None]
  - CATARACT [None]
  - GLAUCOMA [None]
  - ROTATOR CUFF SYNDROME [None]
  - ROAD TRAFFIC ACCIDENT [None]
  - MYALGIA [None]
  - INJECTION SITE PAIN [None]
